FAERS Safety Report 18823296 (Version 2)
Quarter: 2022Q2

REPORT INFORMATION
  Report Type: Spontaneous
  Country: AU (occurrence: None)
  Receive Date: 20210202
  Receipt Date: 20220415
  Transmission Date: 20220721
  Serious: Yes (Hospitalization, Other)
  Sender: FDA-Public Use
  Company Number: 2021A023770

PATIENT
  Age: 30 Year
  Sex: Male

DRUGS (29)
  1. QUETIAPINE [Suspect]
     Active Substance: QUETIAPINE
     Indication: Product used for unknown indication
     Route: 048
     Dates: start: 2013
  2. ARIPIPRAZOLE [Suspect]
     Active Substance: ARIPIPRAZOLE
     Indication: Blood prolactin decreased
     Dosage: 10.0MG UNKNOWN
     Route: 048
     Dates: start: 2013
  3. ARIPIPRAZOLE [Suspect]
     Active Substance: ARIPIPRAZOLE
     Indication: Product used for unknown indication
     Dosage: 10.0MG UNKNOWN
     Route: 048
     Dates: start: 2013
  4. ARIPIPRAZOLE [Suspect]
     Active Substance: ARIPIPRAZOLE
     Indication: Blood prolactin decreased
     Dosage: 10.0MG UNKNOWN
     Route: 048
     Dates: start: 2014
  5. ARIPIPRAZOLE [Suspect]
     Active Substance: ARIPIPRAZOLE
     Indication: Product used for unknown indication
     Dosage: 10.0MG UNKNOWN
     Route: 048
     Dates: start: 2014
  6. ARIPIPRAZOLE [Suspect]
     Active Substance: ARIPIPRAZOLE
     Indication: Blood prolactin decreased
     Dosage: 10.0MG UNKNOWN
     Route: 048
     Dates: start: 2015
  7. ARIPIPRAZOLE [Suspect]
     Active Substance: ARIPIPRAZOLE
     Indication: Product used for unknown indication
     Dosage: 10.0MG UNKNOWN
     Route: 048
     Dates: start: 2015
  8. ARIPIPRAZOLE [Suspect]
     Active Substance: ARIPIPRAZOLE
     Indication: Blood prolactin decreased
     Dosage: 5.0MG UNKNOWN
     Route: 048
     Dates: start: 2016
  9. ARIPIPRAZOLE [Suspect]
     Active Substance: ARIPIPRAZOLE
     Indication: Product used for unknown indication
     Dosage: 5.0MG UNKNOWN
     Route: 048
     Dates: start: 2016
  10. ARIPIPRAZOLE [Suspect]
     Active Substance: ARIPIPRAZOLE
     Indication: Blood prolactin decreased
     Dosage: 10.0MG UNKNOWN
     Route: 048
     Dates: start: 2017
  11. ARIPIPRAZOLE [Suspect]
     Active Substance: ARIPIPRAZOLE
     Indication: Product used for unknown indication
     Dosage: 10.0MG UNKNOWN
     Route: 048
     Dates: start: 2017
  12. ARIPIPRAZOLE [Suspect]
     Active Substance: ARIPIPRAZOLE
     Indication: Blood prolactin decreased
     Dosage: 5.0MG UNKNOWN
     Route: 048
     Dates: start: 2017
  13. ARIPIPRAZOLE [Suspect]
     Active Substance: ARIPIPRAZOLE
     Indication: Product used for unknown indication
     Dosage: 5.0MG UNKNOWN
     Route: 048
     Dates: start: 2017
  14. BREXPIPRAZOLE [Suspect]
     Active Substance: BREXPIPRAZOLE
     Indication: Schizophrenia
     Route: 065
     Dates: start: 2018
  15. BREXPIPRAZOLE [Suspect]
     Active Substance: BREXPIPRAZOLE
     Indication: Product used for unknown indication
     Route: 065
     Dates: start: 2018
  16. BREXPIPRAZOLE [Suspect]
     Active Substance: BREXPIPRAZOLE
     Indication: Schizophrenia
     Dosage: 2.0MG UNKNOWN
     Route: 065
  17. BREXPIPRAZOLE [Suspect]
     Active Substance: BREXPIPRAZOLE
     Indication: Product used for unknown indication
     Dosage: 2.0MG UNKNOWN
     Route: 065
  18. BREXPIPRAZOLE [Suspect]
     Active Substance: BREXPIPRAZOLE
     Indication: Schizophrenia
     Dosage: 1.0MG UNKNOWN
     Route: 065
     Dates: start: 20200922
  19. BREXPIPRAZOLE [Suspect]
     Active Substance: BREXPIPRAZOLE
     Indication: Product used for unknown indication
     Dosage: 1.0MG UNKNOWN
     Route: 065
     Dates: start: 20200922
  20. PALIPERIDONE [Suspect]
     Active Substance: PALIPERIDONE
     Dosage: 150.0MG UNKNOWN
     Route: 065
     Dates: start: 2014
  21. PALIPERIDONE [Suspect]
     Active Substance: PALIPERIDONE
     Dosage: 100.0MG UNKNOWN
     Route: 065
     Dates: start: 2015
  22. PALIPERIDONE [Suspect]
     Active Substance: PALIPERIDONE
     Dosage: 75.0MG UNKNOWN
     Route: 065
     Dates: start: 2016
  23. PALIPERIDONE [Suspect]
     Active Substance: PALIPERIDONE
     Dosage: 50.0MG UNKNOWN
     Route: 065
     Dates: start: 2016, end: 2018
  24. PALIPERIDONE [Suspect]
     Active Substance: PALIPERIDONE
     Dosage: 25.0MG UNKNOWN
     Route: 065
     Dates: start: 2017, end: 2018
  25. PALIPERIDONE [Suspect]
     Active Substance: PALIPERIDONE
     Dosage: 50.0MG UNKNOWN
     Route: 065
  26. PALIPERIDONE PALMITATE [Suspect]
     Active Substance: PALIPERIDONE PALMITATE
     Indication: Product used for unknown indication
     Dosage: 3.0MG UNKNOWN
     Route: 065
     Dates: start: 2015
  27. PALIPERIDONE PALMITATE [Suspect]
     Active Substance: PALIPERIDONE PALMITATE
     Indication: Product used for unknown indication
     Dosage: 75.0MG UNKNOWN
     Route: 065
     Dates: start: 2016
  28. PALIPERIDONE PALMITATE [Suspect]
     Active Substance: PALIPERIDONE PALMITATE
     Indication: Product used for unknown indication
     Dosage: 25.0MG UNKNOWN
     Route: 065
     Dates: start: 2017, end: 2018
  29. PALIPERIDONE PALMITATE [Suspect]
     Active Substance: PALIPERIDONE PALMITATE
     Indication: Product used for unknown indication
     Dosage: UNKNOWN
     Route: 065
     Dates: start: 2018

REACTIONS (14)
  - Sinus node dysfunction [Unknown]
  - Cardiac arrest [Unknown]
  - Chest pain [Unknown]
  - Dizziness [Unknown]
  - Syncope [Unknown]
  - Orthostatic hypertension [Unknown]
  - Condition aggravated [Unknown]
  - Presyncope [Unknown]
  - Chest discomfort [Not Recovered/Not Resolved]
  - Dizziness postural [Not Recovered/Not Resolved]
  - Hypotension [Unknown]
  - Nausea [Unknown]
  - Angina unstable [Unknown]
  - Product use in unapproved indication [Unknown]

NARRATIVE: CASE EVENT DATE: 20180101
